FAERS Safety Report 9131089 (Version 7)
Quarter: 2013Q3

REPORT INFORMATION
  Report Type: Report from Study
  Country: FR (occurrence: FR)
  Receive Date: 20130301
  Receipt Date: 20130709
  Transmission Date: 20140515
  Serious: Yes (Hospitalization, Other)
  Sender: FDA-Public Use
  Company Number: FR-SANOFI-AVENTIS-2013SA019990

PATIENT
  Age: 78 Year
  Sex: Male

DRUGS (12)
  1. CABAZITAXEL [Suspect]
     Indication: PROSTATE CANCER METASTATIC
     Route: 042
     Dates: start: 20121207, end: 20121207
  2. CABAZITAXEL [Suspect]
     Indication: PROSTATE CANCER METASTATIC
     Route: 042
     Dates: start: 20130208, end: 20130208
  3. PREDNISONE [Suspect]
     Indication: PROSTATE CANCER METASTATIC
     Route: 048
     Dates: start: 20121207, end: 20130221
  4. GOSERELIN [Concomitant]
     Route: 058
     Dates: start: 201208
  5. CILAZAPRIL [Concomitant]
     Indication: PROPHYLAXIS
     Route: 048
     Dates: start: 1980
  6. KARDEGIC [Concomitant]
     Indication: PROPHYLAXIS
     Route: 048
     Dates: start: 1980
  7. TETRAZEPAM [Concomitant]
     Indication: PROPHYLAXIS
     Route: 048
     Dates: start: 201210
  8. TETRAZEPAM [Concomitant]
     Indication: PROPHYLAXIS
     Route: 048
     Dates: start: 20130118
  9. ESOMEPRAZOLE [Concomitant]
     Indication: PROPHYLAXIS
     Route: 048
     Dates: start: 1990
  10. KETOPROFENE [Concomitant]
     Indication: PROPHYLAXIS
     Route: 061
     Dates: start: 2008
  11. EMLA [Concomitant]
     Indication: PROPHYLAXIS
     Route: 062
     Dates: start: 20121207
  12. EUPANTOL [Concomitant]
     Indication: PROPHYLAXIS
     Route: 048
     Dates: start: 20121207

REACTIONS (6)
  - Transient ischaemic attack [Recovered/Resolved]
  - Ischaemic stroke [Recovered/Resolved]
  - Acute coronary syndrome [Recovered/Resolved]
  - Staphylococcal sepsis [Recovered/Resolved]
  - Rectal haemorrhage [Recovered/Resolved]
  - Haematuria [Recovered/Resolved]
